FAERS Safety Report 25771992 (Version 1)
Quarter: 2025Q3

REPORT INFORMATION
  Report Type: Spontaneous
  Country: US (occurrence: US)
  Receive Date: 20250908
  Receipt Date: 20250908
  Transmission Date: 20251021
  Serious: Yes (Life-Threatening, Other)
  Sender: SANDOZ
  Company Number: US-ASPEN-GLO2025US007763

PATIENT
  Age: 84 Year
  Sex: Female
  Weight: 67 kg

DRUGS (4)
  1. ANAPEINE [Suspect]
     Active Substance: ROPIVACAINE HYDROCHLORIDE
     Indication: Nerve block
     Route: 065
  2. DEXAMETHASONE [Suspect]
     Active Substance: DEXAMETHASONE
     Indication: Product used for unknown indication
     Route: 065
  3. XYLOCAINE [Suspect]
     Active Substance: LIDOCAINE HYDROCHLORIDE
     Indication: Induction of anaesthesia
     Route: 058
  4. XYLOCAINE [Suspect]
     Active Substance: LIDOCAINE HYDROCHLORIDE
     Indication: Nerve block

REACTIONS (1)
  - Pneumothorax [Unknown]
